FAERS Safety Report 17057566 (Version 1)
Quarter: 2019Q4

REPORT INFORMATION
  Report Type: Spontaneous
  Country: GB (occurrence: GB)
  Receive Date: 20191121
  Receipt Date: 20191121
  Transmission Date: 20200122
  Serious: Yes (Disabling, Other)
  Sender: FDA-Public Use
  Company Number: GB-TEVA-2019-GB-1139087

PATIENT
  Age: 45 Year
  Sex: Female
  Weight: 50.8 kg

DRUGS (1)
  1. LIOTHYRONINE SODIUM. [Suspect]
     Active Substance: LIOTHYRONINE SODIUM
     Indication: AUTOIMMUNE THYROIDITIS
     Dosage: 20 MICROGRAM
     Route: 048
     Dates: start: 20180725

REACTIONS (12)
  - Headache [Unknown]
  - Menstrual disorder [Unknown]
  - Nervousness [Unknown]
  - Abdominal discomfort [Unknown]
  - Decreased appetite [Unknown]
  - Malaise [Unknown]
  - Sleep disorder [Unknown]
  - Feeling abnormal [Unknown]
  - Anxiety [Unknown]
  - Pain in extremity [Unknown]
  - Restlessness [Unknown]
  - Fatigue [Unknown]

NARRATIVE: CASE EVENT DATE: 20180725
